FAERS Safety Report 10560945 (Version 1)
Quarter: 2014Q4

REPORT INFORMATION
  Report Type: Spontaneous
  Country: DE (occurrence: DE)
  Receive Date: 20141103
  Receipt Date: 20141103
  Transmission Date: 20150529
  Serious: Yes (Other)
  Sender: FDA-Public Use
  Company Number: DE-PFIZER INC-2014298953

PATIENT
  Age: 58 Year
  Sex: Male

DRUGS (1)
  1. LONOLOX [Suspect]
     Active Substance: MINOXIDIL

REACTIONS (2)
  - Hypotonia [Unknown]
  - Overdose [Unknown]
